FAERS Safety Report 4638624-9 (Version None)
Quarter: 2005Q2

REPORT INFORMATION
  Report Type: 
  Country: None (occurrence: None)
  Receive Date: 20050325
  Receipt Date: 20041122
  Transmission Date: 20051028
  Serious: No
  Sender: FDA-Public Use
  Company Number: USA041184353

PATIENT
  Age: 54 Year
  Sex: Female
  Weight: 59 kg

DRUGS (2)
  1. FORTEO [Suspect]
     Indication: OSTEOPOROSIS
     Dosage: 20 UG DAY
     Dates: start: 20040401, end: 20041119
  2. CALCIUM CARBONATE [Concomitant]

REACTIONS (9)
  - ARTHRALGIA [None]
  - CONSTIPATION [None]
  - DIFFICULTY IN WALKING [None]
  - FATIGUE [None]
  - INJECTION SITE ERYTHEMA [None]
  - JOINT RANGE OF MOTION DECREASED [None]
  - MUSCLE SPASMS [None]
  - POSTURE ABNORMAL [None]
  - SLUGGISHNESS [None]
